FAERS Safety Report 13853895 (Version 1)
Quarter: 2017Q3

REPORT INFORMATION
  Report Type: Report from Study
  Country: US (occurrence: US)
  Receive Date: 20170809
  Receipt Date: 20170809
  Transmission Date: 20171127
  Serious: Yes (Other)
  Sender: FDA-Public Use
  Company Number: US-GILEAD-2017-0287406

PATIENT
  Age: 47 Year
  Sex: Male

DRUGS (2)
  1. SILDENAFIL CITRATE. [Concomitant]
     Active Substance: SILDENAFIL CITRATE
     Dosage: UNK
  2. AMBRISENTAN [Suspect]
     Active Substance: AMBRISENTAN
     Indication: PRODUCT USED FOR UNKNOWN INDICATION
     Dosage: 10 MG, QD
     Route: 065

REACTIONS (3)
  - Syncope [Unknown]
  - Ligament sprain [Unknown]
  - Pain in extremity [Unknown]

NARRATIVE: CASE EVENT DATE: 201707
